FAERS Safety Report 15586546 (Version 1)
Quarter: 2018Q4

REPORT INFORMATION
  Report Type: Report from Study
  Country: DE (occurrence: DE)
  Receive Date: 20181105
  Receipt Date: 20181105
  Transmission Date: 20190205
  Serious: Yes (Other)
  Sender: FDA-Public Use
  Company Number: DE-BAYER-2018-199060

PATIENT
  Sex: Male
  Weight: 85 kg

DRUGS (5)
  1. METHYLPREDNISOLON [Concomitant]
     Active Substance: METHYLPREDNISOLONE
     Dosage: 1 G, UNK
     Dates: start: 20180323, end: 20180325
  2. PREDNISOLUT [Concomitant]
     Active Substance: PREDNISOLONE
     Dosage: 1000 MG, UNK
     Dates: start: 20181009
  3. BETAFERON [Suspect]
     Active Substance: INTERFERON BETA-1B
     Indication: MULTIPLE SCLEROSIS
     Dosage: UNK
     Route: 058
     Dates: start: 20170407
  4. PREDNISOLUT [Concomitant]
     Active Substance: PREDNISOLONE
     Dosage: 1000 MG, UNK
     Dates: start: 20170516, end: 20170619
  5. PREDNISOLUT [Concomitant]
     Active Substance: PREDNISOLONE
     Dosage: 1000 MG, UNK
     Dates: start: 20180926, end: 20180928

REACTIONS (1)
  - Atrial flutter [Recovered/Resolved]

NARRATIVE: CASE EVENT DATE: 20181014
